FAERS Safety Report 15006432 (Version 1)
Quarter: 2018Q2

REPORT INFORMATION
  Report Type: Spontaneous
  Country: CH (occurrence: CH)
  Receive Date: 20180613
  Receipt Date: 20180613
  Transmission Date: 20180711
  Serious: Yes (Other)
  Sender: FDA-Public Use
  Company Number: CH-JNJFOC-20170907530

PATIENT

DRUGS (3)
  1. INFLIXIMAB, RECOMBINANT [Suspect]
     Active Substance: INFLIXIMAB
     Indication: CROHN^S DISEASE
     Route: 042
  2. INFLIXIMAB, RECOMBINANT [Suspect]
     Active Substance: INFLIXIMAB
     Indication: COLITIS ULCERATIVE
     Route: 042
  3. INFLIXIMAB, RECOMBINANT [Suspect]
     Active Substance: INFLIXIMAB
     Indication: INFLAMMATORY BOWEL DISEASE
     Route: 042

REACTIONS (13)
  - Headache [Unknown]
  - Dyspnoea [Unknown]
  - Pulmonary tuberculosis [Unknown]
  - Hypersensitivity [Unknown]
  - Arthralgia [Unknown]
  - Cough [Unknown]
  - Pyrexia [Unknown]
  - Wheezing [Unknown]
  - Nausea [Unknown]
  - Abdominal pain [Unknown]
  - Sinusitis [Unknown]
  - Adverse drug reaction [Unknown]
  - Rash [Unknown]
